FAERS Safety Report 20858912 (Version 2)
Quarter: 2022Q2

REPORT INFORMATION
  Report Type: Report from Study
  Country: US (occurrence: US)
  Receive Date: 20220522
  Receipt Date: 20220617
  Transmission Date: 20220720
  Serious: No
  Sender: FDA-Public Use
  Company Number: US-NOVARTISTESTPH-NVSC2022US117219

PATIENT
  Sex: Male

DRUGS (1)
  1. PROMACTA [Suspect]
     Active Substance: ELTROMBOPAG OLAMINE
     Indication: Product used for unknown indication
     Dosage: UNK
     Route: 048
     Dates: start: 20220514

REACTIONS (6)
  - Platelet count decreased [Unknown]
  - Depressed mood [Unknown]
  - Insomnia [Unknown]
  - Nausea [Unknown]
  - Pyrexia [Unknown]
  - Myalgia [Unknown]
